FAERS Safety Report 6286010-0 (Version None)
Quarter: 2009Q3

REPORT INFORMATION
  Report Type: 
  Country: None (occurrence: None)
  Receive Date: 20090728
  Receipt Date: 20090717
  Transmission Date: 20100115
  Serious: No
  Sender: FDA-Public Use
  Company Number: GB-EISAI INC.-E3810-03005-SPO-GB

PATIENT
  Age: 55 Year
  Sex: Male
  Weight: 83 kg

DRUGS (7)
  1. PARIET (RABEPRAZOLE) [Suspect]
     Route: 048
     Dates: start: 20090615, end: 20090619
  2. TOLTERODINE TARTRATE [Concomitant]
  3. CARBAMAZEPINE [Concomitant]
     Indication: EPILEPSY
     Route: 048
  4. IRBESARTAN [Concomitant]
  5. LEVETIRACETAM [Concomitant]
     Indication: EPILEPSY
     Route: 048
  6. NEURONTIN [Concomitant]
     Indication: EPILEPSY
     Route: 048
  7. SIMVASTATIN [Concomitant]

REACTIONS (1)
  - EPILEPSY [None]
